FAERS Safety Report 18944731 (Version 2)
Quarter: 2021Q2

REPORT INFORMATION
  Report Type: Spontaneous
  Country: US (occurrence: US)
  Receive Date: 20210226
  Receipt Date: 20210527
  Transmission Date: 20210717
  Serious: No
  Sender: FDA-Public Use
  Company Number: US-PFIZER INC-2021194100

PATIENT
  Age: 11 Year
  Sex: Male

DRUGS (1)
  1. GENOTROPIN [Suspect]
     Active Substance: SOMATROPIN
     Dosage: 1.6 MG, DAILY
     Dates: start: 20180602

REACTIONS (4)
  - Device mechanical issue [Unknown]
  - Device issue [Unknown]
  - Device information output issue [Unknown]
  - Device breakage [Unknown]
